FAERS Safety Report 4680136-0 (Version None)
Quarter: 2005Q2

REPORT INFORMATION
  Report Type: 
  Country: None (occurrence: None)
  Receive Date: 20050602
  Receipt Date: 20050523
  Transmission Date: 20051028
  Serious: Yes (Life-Threatening, Hospitalization)
  Sender: FDA-Public Use
  Company Number: GB-JNJFOC-20050506254

PATIENT
  Age: 56 Year
  Sex: Female
  Weight: 62 kg

DRUGS (3)
  1. REMICADE [Suspect]
     Indication: BEHCET'S SYNDROME
     Route: 042
  2. PREDNISOLONE [Concomitant]
     Route: 049
  3. MYCOPHENOLATE MOFETIL [Concomitant]
     Indication: BEHCET'S SYNDROME
     Route: 049

REACTIONS (3)
  - NIGHT SWEATS [None]
  - PYREXIA [None]
  - TUBERCULOSIS [None]
